FAERS Safety Report 5922446-2 (Version None)
Quarter: 2008Q3

REPORT INFORMATION
  Report Type: 
  Country: None (occurrence: None)
  Receive Date: 20080909
  Receipt Date: 20080627
  Transmission Date: 20090109
  Serious: Yes (Death)
  Sender: FDA-Public Use
  Company Number: 163-20785-08051584

PATIENT
  Age: 73 Year
  Sex: Male

DRUGS (13)
  1. THALOMID [Suspect]
     Indication: MALIGNANT MELANOMA
     Dosage: 100 MG, 2 IN 1 D, ORAL : 150 MG- 200MG, DAILY, ORAL
     Route: 048
     Dates: start: 20070830, end: 20080301
  2. THALOMID [Suspect]
     Indication: MALIGNANT MELANOMA
     Dosage: 100 MG, 2 IN 1 D, ORAL : 150 MG- 200MG, DAILY, ORAL
     Route: 048
     Dates: start: 20080321
  3. ASPIRIN [Concomitant]
  4. INDAPAMIDE [Concomitant]
  5. GLYBURIDE [Concomitant]
  6. DEXAMETHASONE TAB [Concomitant]
  7. METFORMIN HCL [Concomitant]
  8. LENTE INSULIN [Concomitant]
  9. PEPCID [Concomitant]
  10. ARICEPT [Concomitant]
  11. POTASSIUM (POTASSIUM) [Concomitant]
  12. LISINOPRIL [Concomitant]
  13. HEXAVITAMINS (KAPSOVIT) [Concomitant]

REACTIONS (1)
  - NEOPLASM PROGRESSION [None]
